FAERS Safety Report 9980870 (Version 1)
Quarter: 2014Q1

REPORT INFORMATION
  Report Type: Spontaneous
  Country: US (occurrence: US)
  Receive Date: 20140307
  Receipt Date: 20140307
  Transmission Date: 20141002
  Serious: No
  Sender: FDA-Public Use
  Company Number: US-GLAXOSMITHKLINE-A1008888A

PATIENT
  Age: 60 Year
  Sex: Female

DRUGS (3)
  1. ROPINIROLE [Suspect]
     Indication: RESTLESS LEGS SYNDROME
     Route: 048
  2. ARMOUR THYROID [Concomitant]
  3. LOTREL [Concomitant]

REACTIONS (2)
  - Pruritus [Recovered/Resolved]
  - Drug ineffective [Recovered/Resolved]
